FAERS Safety Report 6568408-6 (Version None)
Quarter: 2010Q1

REPORT INFORMATION
  Report Type: 
  Country: None (occurrence: None)
  Receive Date: 20100203
  Receipt Date: 20100129
  Transmission Date: 20100710
  Serious: Yes (Death, Hospitalization)
  Sender: FDA-Public Use
  Company Number: US-RB-015283-09

PATIENT
  Age: 47 Year
  Sex: Female

DRUGS (5)
  1. SUBOXONE [Suspect]
     Route: 060
     Dates: start: 20090301
  2. XANAX [Concomitant]
     Indication: ANXIETY
  3. MENEST [Concomitant]
     Indication: MENOPAUSAL SYMPTOMS
     Dosage: UNKNOWN DOSE
  4. REGLAN [Concomitant]
     Indication: NAUSEA
     Dosage: UNKNOWN DOSE
  5. CELEXA [Concomitant]
     Indication: DEPRESSION
     Dosage: UNKNOWN DOSE

REACTIONS (10)
  - ABNORMAL DREAMS [None]
  - AORTIC THROMBOSIS [None]
  - HEADACHE [None]
  - HYPERTENSION [None]
  - PALPITATIONS [None]
  - POST PROCEDURAL COMPLICATION [None]
  - RASH [None]
  - RESTLESS LEGS SYNDROME [None]
  - SWELLING [None]
  - VOMITING [None]
